FAERS Safety Report 8907793 (Version 1)
Quarter: 2012Q4

REPORT INFORMATION
  Report Type: 
  Country: US (occurrence: US)
  Receive Date: 20121113
  Receipt Date: 20121113
  Transmission Date: 20130627
  Serious: No
  Sender: FDA-Public Use
  Company Number: US-AMGEN-USASP2012010341

PATIENT
  Age: 68 Year
  Sex: Female

DRUGS (13)
  1. ENBREL [Suspect]
     Indication: RHEUMATOID ARTHRITIS
     Dosage: 50 mg, qwk
     Dates: start: 20120201
  2. SYNTHROID [Concomitant]
     Dosage: 150 UNK, UNK
  3. ASACOL [Concomitant]
     Dosage: 400 mg, UNK
  4. NEXIUM                             /01479302/ [Concomitant]
     Dosage: 20 mg, UNK
  5. SPIRONOLACTON [Concomitant]
     Dosage: 100 mg, UNK
  6. DILTIAZEM [Concomitant]
     Dosage: 120 mg, UNK
  7. CRESTOR [Concomitant]
     Dosage: 10 mg, UNK
  8. MULTIVITAMIN                       /00097801/ [Concomitant]
  9. ATROVENT HFA [Concomitant]
  10. OSCAL                              /00514701/ [Concomitant]
  11. ESTER C                            /00008001/ [Concomitant]
  12. OMEGA 3                            /01334101/ [Concomitant]
  13. TYLENOL /00020001/ [Concomitant]
     Dosage: 500 mg, UNK

REACTIONS (2)
  - Laceration [Unknown]
  - Infection [Unknown]
